FAERS Safety Report 4383117-X (Version None)
Quarter: 2004Q2

REPORT INFORMATION
  Report Type: 
  Country: None (occurrence: None)
  Receive Date: 20040618
  Receipt Date: 20040601
  Transmission Date: 20050107
  Serious: Yes (Hospitalization)
  Sender: FDA-Public Use
  Company Number: FR_040604214

PATIENT
  Age: 62 Year
  Sex: Male

DRUGS (2)
  1. GEMZAR [Suspect]
     Indication: NON-SMALL CELL LUNG CANCER
     Dosage: 1250 MG/M2/2 OTHER
     Route: 042
     Dates: start: 20040401, end: 20040501
  2. CISPLATIN [Concomitant]

REACTIONS (2)
  - CYANOSIS [None]
  - EXTREMITY NECROSIS [None]
